FAERS Safety Report 5400710-3 (Version None)
Quarter: 2007Q3

REPORT INFORMATION
  Report Type: 
  Country: None (occurrence: None)
  Receive Date: 20070730
  Receipt Date: 20070719
  Transmission Date: 20080115
  Serious: Yes (Other)
  Sender: FDA-Public Use
  Company Number: GB-GENENTECH-244969

PATIENT
  Age: 74 Year
  Sex: Male

DRUGS (2)
  1. AVASTIN [Suspect]
     Indication: CHOROIDAL NEOVASCULARISATION
     Dosage: 1.25 MG, UNK
     Route: 031
  2. AVASTIN [Suspect]
     Indication: MACULAR DEGENERATION

REACTIONS (3)
  - DETACHMENT OF RETINAL PIGMENT EPITHELIUM [None]
  - RETINAL HAEMORRHAGE [None]
  - SUBRETINAL FIBROSIS [None]
